FAERS Safety Report 8774669 (Version 1)
Quarter: 2012Q4

REPORT INFORMATION
  Report Type: 
  Country: US (occurrence: US)
  Receive Date: 20120910
  Receipt Date: 20120910
  Transmission Date: 20130627
  Serious: No
  Sender: FDA-Public Use
  Company Number: US-009507513-1209USA000327

PATIENT

DRUGS (1)
  1. IMPLANON [Suspect]
     Indication: CONTRACEPTION
     Dosage: dose/frequency : every 3 years
     Route: 059
     Dates: start: 20100804

REACTIONS (2)
  - Migraine [Unknown]
  - Nausea [Unknown]
